FAERS Safety Report 5790146-8 (Version None)
Quarter: 2008Q2

REPORT INFORMATION
  Report Type: 
  Country: None (occurrence: None)
  Receive Date: 20080626
  Receipt Date: 20080425
  Transmission Date: 20081010
  Serious: No
  Sender: FDA-Public Use
  Company Number: A0695778A

PATIENT
  Sex: Female

DRUGS (1)
  1. ALLI [Suspect]
     Dates: start: 20071101

REACTIONS (3)
  - MUSCLE SPASMS [None]
  - STEATORRHOEA [None]
  - WEIGHT INCREASED [None]
